FAERS Safety Report 8643119 (Version 3)
Quarter: 2012Q4

REPORT INFORMATION
  Report Type: 
  Country: JP (occurrence: JP)
  Receive Date: 20120629
  Receipt Date: 20120926
  Transmission Date: 20130627
  Serious: Yes (Hospitalization)
  Sender: FDA-Public Use
  Company Number: JP-PFIZER INC-2012128375

PATIENT
  Age: 78 Year
  Sex: Male
  Weight: 63.35 kg

DRUGS (6)
  1. SUTENT [Suspect]
     Indication: RENAL CANCER
     Dosage: 37.5 mg, 1x/day
     Route: 048
     Dates: start: 20120508, end: 20120523
  2. DEPAKENE [Concomitant]
     Dosage: 600 mg, 2x/day
  3. GASTER [Concomitant]
     Dosage: 20 mg, 2x/day
  4. MAGMITT [Concomitant]
     Dosage: 330 mg, 3x/day
  5. HARNAL [Concomitant]
     Dosage: 0.2 mg, 1x/day
  6. GOREI-SAN [Concomitant]
     Dosage: 2.5 g, 3x/day

REACTIONS (2)
  - Erythema multiforme [Recovered/Resolved]
  - Platelet count decreased [Recovering/Resolving]
